FAERS Safety Report 19193924 (Version 1)
Quarter: 2021Q2

REPORT INFORMATION
  Report Type: Spontaneous
  Country: US (occurrence: US)
  Receive Date: 20210428
  Receipt Date: 20210428
  Transmission Date: 20210717
  Serious: Yes (Life-Threatening, Hospitalization)
  Sender: FDA-Public Use
  Company Number: None

PATIENT
  Age: 48 Year
  Sex: Male
  Weight: 128 kg

DRUGS (9)
  1. PHENAZOPYRIDINE. [Concomitant]
     Active Substance: PHENAZOPYRIDINE
     Dates: start: 20210127, end: 20210129
  2. MELATONIN [Concomitant]
     Active Substance: MELATONIN
     Dates: start: 20210129, end: 20210201
  3. TAMSULOSIN [Concomitant]
     Active Substance: TAMSULOSIN
     Dates: start: 20210127, end: 20210201
  4. METHYLPREDNISOLONE SODIUM SUCCINATE. [Suspect]
     Active Substance: METHYLPREDNISOLONE SODIUM SUCCINATE
     Indication: CROHN^S DISEASE
     Route: 040
     Dates: start: 20210129, end: 20210130
  5. DDAVP [Concomitant]
     Active Substance: DESMOPRESSIN ACETATE
     Dates: start: 20210130, end: 20210131
  6. ACETAMINOPHEN. [Concomitant]
     Active Substance: ACETAMINOPHEN
     Dates: start: 20210127, end: 20210131
  7. HYDROMORPHONE [Concomitant]
     Active Substance: HYDROMORPHONE
     Dates: start: 20210127, end: 20210201
  8. ENOXAPARIN [Concomitant]
     Active Substance: ENOXAPARIN
     Dates: start: 20210127, end: 20210201
  9. OXYCODONE [Concomitant]
     Active Substance: OXYCODONE
     Dates: start: 20210127, end: 20210201

REACTIONS (1)
  - Anaphylactic reaction [None]

NARRATIVE: CASE EVENT DATE: 20210130
